FAERS Safety Report 4967915-7 (Version None)
Quarter: 2006Q2

REPORT INFORMATION
  Report Type: 
  Country: None (occurrence: None)
  Receive Date: 20060407
  Receipt Date: 20060407
  Transmission Date: 20061013
  Serious: No
  Sender: FDA-Public Use
  Company Number: None

PATIENT
  Age: 47 Year
  Sex: Male

DRUGS (1)
  1. GLIMEPIRIDE [Suspect]
     Indication: DIABETES MELLITUS
     Dosage: 1 PO Q AM 1/2 PM
     Route: 048
     Dates: start: 20060329, end: 20060406

REACTIONS (1)
  - BLOOD GLUCOSE INCREASED [None]
